FAERS Safety Report 9891810 (Version 1)
Quarter: 2014Q1

REPORT INFORMATION
  Report Type: Spontaneous
  Country: DE (occurrence: DE)
  Receive Date: 20140212
  Receipt Date: 20140212
  Transmission Date: 20141002
  Serious: Yes (Other)
  Sender: FDA-Public Use
  Company Number: DE-PFIZER INC-2014038258

PATIENT
  Age: 69 Year
  Sex: Female

DRUGS (3)
  1. IBUPROFEN [Suspect]
     Dosage: UNK
  2. TILIDINE [Suspect]
     Dosage: UNK
  3. NOVALGIN [Suspect]
     Dosage: UNK

REACTIONS (1)
  - Hepatic failure [Unknown]
